FAERS Safety Report 4871838-1 (Version None)
Quarter: 2006Q1

REPORT INFORMATION
  Report Type: 
  Country: None (occurrence: None)
  Receive Date: 20060104
  Receipt Date: 20050920
  Transmission Date: 20060701
  Serious: Yes (Hospitalization, Disabling)
  Sender: FDA-Public Use
  Company Number: US-MERCK-0509USA03109

PATIENT
  Age: 61 Year
  Sex: Female
  Weight: 107 kg

DRUGS (18)
  1. VIOXX [Suspect]
     Indication: ARTHRITIS
     Route: 048
     Dates: start: 19990101, end: 20040101
  2. SYNTHROID [Concomitant]
     Indication: THYROID DISORDER
     Route: 065
  3. ZESTRIL [Concomitant]
     Indication: HYPERTENSION
     Route: 065
  4. QUINIDINE [Concomitant]
     Indication: MUSCLE SPASMS
     Route: 065
  5. HYDROCHLOROTHIAZIDE AND SPIRONOLACTONE [Concomitant]
     Indication: BLOOD PRESSURE
     Route: 065
  6. ACETAMINOPHEN AND PROPOXYPHENE NAPSYLATE [Concomitant]
     Indication: ARTHRITIS
     Route: 065
  7. AMBIEN [Concomitant]
     Route: 065
  8. BUSPIRONE HYDROCHLORIDE [Concomitant]
     Indication: ANXIETY
     Route: 065
  9. LORAZEPAM [Concomitant]
     Indication: ANXIETY
     Route: 065
  10. HYDROCODONE BITARTRATE [Concomitant]
     Indication: COUGH
     Route: 065
  11. MEVACOR [Concomitant]
     Indication: BLOOD CHOLESTEROL
     Route: 048
  12. HYDROXYZINE HYDROCHLORIDE [Concomitant]
     Indication: ANXIETY
     Route: 065
  13. PREDNISONE [Concomitant]
     Route: 065
  14. LEVOXYL [Concomitant]
     Indication: THYROID DISORDER
     Route: 065
  15. ULTRAM [Concomitant]
     Indication: ANALGESIC EFFECT
     Route: 065
  16. CELEBREX [Concomitant]
     Indication: ARTHRITIS
     Route: 065
  17. SKELAXIN [Concomitant]
     Indication: MYALGIA
     Route: 065
  18. NASACORT [Concomitant]
     Indication: SINUS DISORDER
     Route: 065

REACTIONS (10)
  - ARTHROPATHY [None]
  - CARDIAC DISORDER [None]
  - CEREBROVASCULAR ACCIDENT [None]
  - DYSPEPSIA [None]
  - GALLBLADDER DISORDER [None]
  - HEADACHE [None]
  - HIATUS HERNIA [None]
  - OEDEMA PERIPHERAL [None]
  - OESOPHAGEAL DISORDER [None]
  - ULCER [None]
